FAERS Safety Report 4466046-2 (Version None)
Quarter: 2004Q3

REPORT INFORMATION
  Report Type: 
  Country: None (occurrence: None)
  Receive Date: 20040930
  Receipt Date: 20040920
  Transmission Date: 20050211
  Serious: Yes (Hospitalization)
  Sender: FDA-Public Use
  Company Number: STA-AE-04-MTX-431

PATIENT
  Age: 63 Year
  Sex: Female

DRUGS (16)
  1. RHEUMATREX [Suspect]
     Indication: RHEUMATOID ARTHRITIS
     Dosage: 6 MG 1X PER 1 WK, ORAL
     Route: 048
     Dates: start: 19950413
  2. PREDNISOLONE [Suspect]
     Indication: RHEUMATOID ARTHRITIS
     Dosage: 10 MG 1X PER 1 DAY, ORAL
     Route: 048
     Dates: start: 20021107
  3. REMICADE [Suspect]
     Indication: RHEUMATOID ARTHRITIS
     Dosage: 3 MG/KG/DAY, INTRAVENOUS
     Route: 042
     Dates: start: 20031007, end: 20031007
  4. REMICADE [Suspect]
     Indication: RHEUMATOID ARTHRITIS
     Dosage: 3 MG/KG/DAY, INTRAVENOUS
     Route: 042
     Dates: start: 20031021, end: 20031021
  5. REMICADE [Suspect]
     Indication: RHEUMATOID ARTHRITIS
     Dosage: 3 MG/KG/DAY, INTRAVENOUS
     Route: 042
     Dates: start: 20031118
  6. REMICADE [Suspect]
     Indication: RHEUMATOID ARTHRITIS
     Dosage: 3 MG/KG/DAY, INTRAVENOUS
     Route: 042
     Dates: start: 20040106, end: 20040106
  7. REMICADE [Suspect]
     Indication: RHEUMATOID ARTHRITIS
     Dosage: 3 MG/KG/DAY, INTRAVENOUS
     Route: 042
     Dates: start: 20040302, end: 20040302
  8. INDOMETHACIN [Concomitant]
  9. INDOMETHINE (INDOMETACIN) [Concomitant]
  10. VOLTAREN [Concomitant]
  11. NORVASC [Concomitant]
  12. NU-LOTAN (LOSARTAN POTASSIUM) [Concomitant]
  13. FOLIC ACID [Concomitant]
  14. LANSOPRAZOLE [Concomitant]
  15. DEPAS (ETIZOLAM) [Concomitant]
  16. EVAMYL (LORMETAZEPAM) [Concomitant]

REACTIONS (2)
  - BACILLUS INFECTION [None]
  - BACTERIAL PYELONEPHRITIS [None]
